FAERS Safety Report 16364040 (Version 1)
Quarter: 2019Q2

REPORT INFORMATION
  Report Type: Spontaneous
  Country: JP (occurrence: JP)
  Receive Date: 20190528
  Receipt Date: 20190528
  Transmission Date: 20190711
  Serious: Yes (Other)
  Sender: FDA-Public Use
  Company Number: JP-PFIZER INC-2019215913

PATIENT
  Sex: Male

DRUGS (1)
  1. LYRICA [Suspect]
     Active Substance: PREGABALIN
     Dosage: 450 MG, UNK
     Route: 048

REACTIONS (16)
  - Swelling [Unknown]
  - Tinnitus [Unknown]
  - Tremor [Unknown]
  - Deafness [Unknown]
  - Hypohidrosis [Unknown]
  - Feeling abnormal [Unknown]
  - Oedema [Unknown]
  - Language disorder [Unknown]
  - Hyperhidrosis [Unknown]
  - Musculoskeletal stiffness [Unknown]
  - Fatigue [Unknown]
  - Loss of consciousness [Unknown]
  - Dizziness [Unknown]
  - Hypoaesthesia [Unknown]
  - Memory impairment [Unknown]
  - Vision blurred [Unknown]
